FAERS Safety Report 17928355 (Version 4)
Quarter: 2021Q2

REPORT INFORMATION
  Report Type: Spontaneous
  Country: US (occurrence: US)
  Receive Date: 20200623
  Receipt Date: 20210625
  Transmission Date: 20210717
  Serious: Yes (Other)
  Sender: FDA-Public Use
  Company Number: US-GILEAD-2020-0474539

PATIENT
  Age: 52 Year
  Sex: Male
  Weight: 74.83 kg

DRUGS (43)
  1. DESCOVY [Concomitant]
     Active Substance: EMTRICITABINE\TENOFOVIR ALAFENAMIDE FUMARATE
  2. ACICLOVIR [Concomitant]
     Active Substance: ACYCLOVIR
  3. ALDACTONE [Concomitant]
     Active Substance: SPIRONOLACTONE
  4. ASPIRINE [Concomitant]
     Active Substance: ASPIRIN
  5. ATORVASTATIN [Concomitant]
     Active Substance: ATORVASTATIN
  6. CORTISONE [Concomitant]
     Active Substance: CORTISONE
  7. HALOPERIDOL. [Concomitant]
     Active Substance: HALOPERIDOL
  8. LITHIUM. [Concomitant]
     Active Substance: LITHIUM
  9. BIKTARVY [Concomitant]
     Active Substance: BICTEGRAVIR SODIUM\EMTRICITABINE\TENOFOVIR ALAFENAMIDE FUMARATE
  10. TOBRAMYCIN. [Concomitant]
     Active Substance: TOBRAMYCIN
  11. AMOXICILLIN. [Concomitant]
     Active Substance: AMOXICILLIN
  12. BACTRIM [Concomitant]
     Active Substance: SULFAMETHOXAZOLE\TRIMETHOPRIM
  13. CRESTOR [Concomitant]
     Active Substance: ROSUVASTATIN CALCIUM
  14. ACETAMINOPHEN. [Concomitant]
     Active Substance: ACETAMINOPHEN
  15. COZAAR [Concomitant]
     Active Substance: LOSARTAN POTASSIUM
  16. BENICAR [Concomitant]
     Active Substance: OLMESARTAN MEDOXOMIL
  17. LOTENSINE [Concomitant]
     Active Substance: CAPTOPRIL
  18. VASOTEC [Concomitant]
     Active Substance: ENALAPRIL MALEATE
  19. XANAX [Concomitant]
     Active Substance: ALPRAZOLAM
  20. PAXIL [Concomitant]
     Active Substance: PAROXETINE HYDROCHLORIDE
  21. VALIUM [Concomitant]
     Active Substance: DIAZEPAM
  22. DEXAMETHASONE. [Concomitant]
     Active Substance: DEXAMETHASONE
  23. FAMOTIDINE. [Concomitant]
     Active Substance: FAMOTIDINE
  24. PROZAC [Concomitant]
     Active Substance: FLUOXETINE HYDROCHLORIDE
  25. TRUVADA [Suspect]
     Active Substance: EMTRICITABINE\TENOFOVIR DISOPROXIL FUMARATE
     Indication: HIV INFECTION
     Dosage: UNK
     Route: 048
     Dates: start: 200501, end: 2017
  26. TRUVADA [Suspect]
     Active Substance: EMTRICITABINE\TENOFOVIR DISOPROXIL FUMARATE
     Dosage: UNK
     Route: 065
     Dates: start: 2016, end: 2018
  27. ZESTRIL [Concomitant]
     Active Substance: LISINOPRIL
  28. ACCUPRIL [Concomitant]
     Active Substance: QUINAPRIL HYDROCHLORIDE
  29. ATIVAN [Concomitant]
     Active Substance: LORAZEPAM
  30. IBUPROFEN. [Concomitant]
     Active Substance: IBUPROFEN
  31. OMEPRAZOLE. [Concomitant]
     Active Substance: OMEPRAZOLE
  32. RANITIDINE. [Concomitant]
     Active Substance: RANITIDINE
  33. AVAPRO [Concomitant]
     Active Substance: IRBESARTAN
  34. HEPARIN [Concomitant]
     Active Substance: HEPARIN SODIUM
  35. DICLOFENAC [Concomitant]
     Active Substance: DICLOFENAC
  36. ATACAND [Concomitant]
     Active Substance: CANDESARTAN CILEXETIL
  37. BUMEX [Concomitant]
     Active Substance: BUMETANIDE
  38. NAPROXEN. [Concomitant]
     Active Substance: NAPROXEN
  39. ZOLOFT [Concomitant]
     Active Substance: SERTRALINE HYDROCHLORIDE
  40. PREZISTA [Concomitant]
     Active Substance: DARUNAVIR ETHANOLATE
  41. DIOVAN [Concomitant]
     Active Substance: VALSARTAN
  42. CIMETIDINE [Concomitant]
     Active Substance: CIMETIDINE
  43. PANTOPRAZOLE [Concomitant]
     Active Substance: PANTOPRAZOLE

REACTIONS (11)
  - End stage renal disease [Not Recovered/Not Resolved]
  - Chronic kidney disease [Not Recovered/Not Resolved]
  - Osteonecrosis [Not Recovered/Not Resolved]
  - Pain [Unknown]
  - Chronic kidney disease [Unknown]
  - Osteopenia [Unknown]
  - Multiple fractures [Not Recovered/Not Resolved]
  - Osteoporosis [Not Recovered/Not Resolved]
  - Tooth loss [Not Recovered/Not Resolved]
  - Emotional distress [Unknown]
  - Bone density decreased [Unknown]

NARRATIVE: CASE EVENT DATE: 201801
